FAERS Safety Report 22860195 (Version 9)
Quarter: 2025Q1

REPORT INFORMATION
  Report Type: Spontaneous
  Country: US (occurrence: US)
  Receive Date: 20230824
  Receipt Date: 20250217
  Transmission Date: 20250409
  Serious: No
  Sender: LUPIN
  Company Number: US-LUPIN PHARMACEUTICALS INC.-2023-07024

PATIENT

DRUGS (17)
  1. ALBUTEROL SULFATE [Suspect]
     Active Substance: ALBUTEROL SULFATE
     Indication: Chronic obstructive pulmonary disease
     Dates: start: 202308
  2. ALBUTEROL SULFATE [Suspect]
     Active Substance: ALBUTEROL SULFATE
  3. ALBUTEROL SULFATE [Suspect]
     Active Substance: ALBUTEROL SULFATE
     Dates: start: 202308
  4. ALBUTEROL SULFATE [Suspect]
     Active Substance: ALBUTEROL SULFATE
     Dates: start: 202308
  5. ALBUTEROL SULFATE [Suspect]
     Active Substance: ALBUTEROL SULFATE
     Dosage: UNK, QID, 1 PUFF
  6. ALBUTEROL SULFATE [Suspect]
     Active Substance: ALBUTEROL SULFATE
     Dosage: UNK, QID, 1 PUFF
  7. ALBUTEROL SULFATE [Suspect]
     Active Substance: ALBUTEROL SULFATE
     Dosage: UNK UNK, QID, 1 PUFF
  8. BUPROPION [Concomitant]
     Active Substance: BUPROPION
     Indication: Anxiety
     Dosage: 300 MG, QD (ONCE A DAY)
     Route: 065
  9. CLOPIDOGREL [Concomitant]
     Active Substance: CLOPIDOGREL BISULFATE
     Indication: Cardiac disorder
     Dosage: 175 MG, QD (ONE A DAY)
     Route: 065
  10. FLUTICASONE [Concomitant]
     Active Substance: FLUTICASONE
     Indication: Chronic obstructive pulmonary disease
     Dosage: UNK, BID, ONE PUFF
     Route: 065
  11. METFORMIN [Concomitant]
     Active Substance: METFORMIN HYDROCHLORIDE
     Indication: Diabetes mellitus
     Dosage: 2 DOSAGE FORM, BID (2 TABLETS TWICE A DAY)
     Route: 065
  12. METOPROLOL [Concomitant]
     Active Substance: METOPROLOL
     Indication: Cardiac disorder
     Dosage: UNK, QD (ONCE A DAY)
     Route: 065
  13. MONTELUKAST [Concomitant]
     Active Substance: MONTELUKAST
     Indication: Cardiac disorder
     Dosage: UNK UNK, QD
     Route: 065
  14. PROPANOL (PROPRANOLOL HYDROCHLORIDE) [Concomitant]
     Active Substance: PROPRANOLOL HYDROCHLORIDE
     Indication: Product used for unknown indication
     Dosage: TWICE A DAY
     Route: 065
  15. GABAPENTIN [Concomitant]
     Active Substance: GABAPENTIN
     Indication: Neuralgia
     Dosage: UNK, BID
     Route: 065
  16. ROSUVASTATIN [Concomitant]
     Active Substance: ROSUVASTATIN
     Indication: Blood cholesterol abnormal
     Dosage: UNK, QD
     Route: 065
  17. SERTRALINE [Concomitant]
     Active Substance: SERTRALINE HYDROCHLORIDE
     Indication: Anxiety
     Route: 065

REACTIONS (4)
  - Dyspnoea [Unknown]
  - Wrong technique in product usage process [Unknown]
  - Device delivery system issue [Unknown]
  - Drug dose omission by device [Unknown]
